FAERS Safety Report 14112981 (Version 2)
Quarter: 2017Q4

REPORT INFORMATION
  Report Type: Spontaneous
  Country: GB (occurrence: GB)
  Receive Date: 20171022
  Receipt Date: 20171122
  Transmission Date: 20180321
  Serious: Yes (Other)
  Sender: FDA-Public Use
  Company Number: GB-BAXTER-2017BAX035554

PATIENT
  Age: 77 Year
  Sex: Male
  Weight: 80.1 kg

DRUGS (5)
  1. NUTRINEAL [Suspect]
     Active Substance: AMINO ACIDS\CALCIUM CHLORIDE\MAGNESIUM CHLORIDE\SODIUM CHLORIDE\SODIUM LACTATE
     Indication: PERITONEAL DIALYSIS
     Dosage: 1 UNIT
     Route: 033
     Dates: start: 20150706
  2. EXTRANEAL [Suspect]
     Active Substance: CALCIUM CHLORIDE\ICODEXTRIN\MAGNESIUM CHLORIDE\SODIUM CHLORIDE\SODIUM LACTATE
     Indication: PERITONEAL DIALYSIS
     Dosage: 1 UNIT
     Route: 033
     Dates: start: 20150706
  3. BISOPROLOL FUMERATE [Suspect]
     Active Substance: BISOPROLOL FUMARATE
     Indication: LEFT VENTRICULAR DYSFUNCTION
     Route: 065
  4. BISOPROLOL FUMERATE [Suspect]
     Active Substance: BISOPROLOL FUMARATE
     Route: 065
     Dates: start: 20170630
  5. DIANEAL [Suspect]
     Active Substance: CALCIUM CHLORIDE\DEXTROSE\MAGNESIUM CHLORIDE\SODIUM CHLORIDE\SODIUM LACTATE
     Indication: PERITONEAL DIALYSIS
     Dosage: 2 UNIT
     Route: 033
     Dates: start: 20150706

REACTIONS (7)
  - Syncope [Recovered/Resolved]
  - Condition aggravated [Unknown]
  - Application site pruritus [Unknown]
  - Catheter site inflammation [Unknown]
  - Left ventricular dysfunction [Unknown]
  - Psoriasis [Unknown]
  - Application site laceration [Unknown]

NARRATIVE: CASE EVENT DATE: 201510
